FAERS Safety Report 11954207 (Version 1)
Quarter: 2016Q1

REPORT INFORMATION
  Report Type: Spontaneous
  Country: US (occurrence: US)
  Receive Date: 20160125
  Receipt Date: 20160125
  Transmission Date: 20160526
  Serious: Yes (Hospitalization, Other)
  Sender: FDA-Public Use
  Company Number: US-ABBVIE-15K-163-1338376-00

PATIENT
  Sex: Female
  Weight: 49.94 kg

DRUGS (1)
  1. HUMIRA [Suspect]
     Active Substance: ADALIMUMAB
     Indication: RHEUMATOID ARTHRITIS
     Route: 058
     Dates: start: 20131003, end: 20150114

REACTIONS (4)
  - Alopecia [Not Recovered/Not Resolved]
  - Dry skin [Not Recovered/Not Resolved]
  - Nephrolithiasis [Recovered/Resolved]
  - Renal function test abnormal [Not Recovered/Not Resolved]

NARRATIVE: CASE EVENT DATE: 2013
